FAERS Safety Report 10540115 (Version 1)
Quarter: 2014Q4

REPORT INFORMATION
  Report Type: Spontaneous
  Country: US (occurrence: None)
  Receive Date: 20141022
  Receipt Date: 20141022
  Transmission Date: 20150529
  Serious: Yes (Other)
  Sender: FDA-Public Use
  Company Number: INT_00483_2014

PATIENT
  Age: 64 Year
  Sex: Female

DRUGS (2)
  1. CISPLATIN 135 MG (HQ SPECIALTY) [Suspect]
     Active Substance: CISPLATIN
     Indication: PRODUCT USED FOR UNKNOWN INDICATION
  2. 5-FLUOROURACIL /00098801/ [Concomitant]
     Active Substance: FLUOROURACIL

REACTIONS (8)
  - Polyuria [None]
  - Dizziness [None]
  - Mediastinitis [None]
  - Weight decreased [None]
  - Blood sodium decreased [None]
  - Renal salt-wasting syndrome [None]
  - Hypovolaemia [None]
  - Asthenia [None]
